FAERS Safety Report 6271836-X (Version None)
Quarter: 2009Q3

REPORT INFORMATION
  Report Type: 
  Country: None (occurrence: None)
  Receive Date: 20090717
  Receipt Date: 20070320
  Transmission Date: 20100115
  Serious: Yes (Other)
  Sender: FDA-Public Use
  Company Number: US-ASTRAZENECA-2006UW03315

PATIENT
  Age: 430 Month
  Sex: Female
  Weight: 139.7 kg

DRUGS (17)
  1. SEROQUEL [Suspect]
     Indication: DEPRESSION
     Route: 048
     Dates: start: 20000401, end: 20021001
  2. SEROQUEL [Suspect]
     Indication: ANXIETY
     Route: 048
     Dates: start: 20000401, end: 20021001
  3. SEROQUEL [Suspect]
     Indication: SCHIZOPHRENIA
     Route: 048
     Dates: start: 20000401, end: 20021001
  4. SEROQUEL [Suspect]
     Dosage: 25-200MG
     Route: 048
     Dates: start: 20000407
  5. SEROQUEL [Suspect]
     Dosage: 25-200MG
     Route: 048
     Dates: start: 20000407
  6. SEROQUEL [Suspect]
     Dosage: 25-200MG
     Route: 048
     Dates: start: 20000407
  7. RISPERDAL [Concomitant]
     Dates: start: 19990101, end: 20000101
  8. ZYPREXA [Concomitant]
     Dates: start: 19970101, end: 19990101
  9. SYMBYAX [Concomitant]
     Dates: start: 20010101, end: 20020101
  10. NEURONTIN [Concomitant]
     Dosage: 300-600MG
     Dates: start: 20000407
  11. PROZAC [Concomitant]
     Dosage: 10-20MG
     Dates: start: 20000502
  12. DESIPRAMINE HCL [Concomitant]
     Dates: start: 20000407
  13. TRILEPTAL [Concomitant]
     Dosage: 300-600MG
     Dates: start: 20020710
  14. ZOLOFT [Concomitant]
     Dosage: 50-100MG
     Dates: start: 20050127
  15. GEODON [Concomitant]
     Dates: start: 20050223
  16. METFORMIN HCL [Concomitant]
     Dosage: 500-800MG
     Dates: start: 20041112
  17. BENZTROPINE [Concomitant]
     Dosage: 1-2MG
     Dates: start: 20000313

REACTIONS (10)
  - BLOOD TRIGLYCERIDES INCREASED [None]
  - DIABETES MELLITUS [None]
  - DIABETIC NEUROPATHY [None]
  - DIABETIC VASCULAR DISORDER [None]
  - HYPERCHOLESTEROLAEMIA [None]
  - HYPERLIPIDAEMIA [None]
  - HYPERSENSITIVITY [None]
  - OBESITY [None]
  - PERIPHERAL VASCULAR DISORDER [None]
  - TYPE 2 DIABETES MELLITUS [None]
